FAERS Safety Report 4275347-2 (Version None)
Quarter: 2004Q1

REPORT INFORMATION
  Report Type: 
  Country: None (occurrence: None)
  Receive Date: 20040116
  Receipt Date: 20040105
  Transmission Date: 20041129
  Serious: Yes (Hospitalization)
  Sender: FDA-Public Use
  Company Number: 04-NIP00002 (0)

PATIENT
  Sex: Male

DRUGS (3)
  1. NIPENT [Suspect]
     Indication: LYMPHOMA
     Dates: start: 20030813
  2. CYCLOPHOSPHAMIDE [Suspect]
  3. RITUXIMAB [Suspect]

REACTIONS (3)
  - BURSITIS [None]
  - HAEMORRHAGE [None]
  - PAIN IN EXTREMITY [None]
